FAERS Safety Report 16390352 (Version 1)
Quarter: 2019Q2

REPORT INFORMATION
  Report Type: Spontaneous
  Country: US (occurrence: US)
  Receive Date: 20190604
  Receipt Date: 20190604
  Transmission Date: 20190711
  Serious: No
  Sender: FDA-Public Use
  Company Number: US-TEVA-2019-US-1055958

PATIENT
  Sex: Female

DRUGS (2)
  1. TEVA TOLTERODINE TARTRATE EXTENDED-RELEASE CAPSULES [Suspect]
     Active Substance: TOLTERODINE TARTRATE
     Dates: start: 201904
  2. POTASSIUM [Concomitant]
     Active Substance: POTASSIUM

REACTIONS (3)
  - Dry mouth [Unknown]
  - Product substitution issue [Unknown]
  - Pollakiuria [Unknown]

NARRATIVE: CASE EVENT DATE: 201904
